FAERS Safety Report 9714759 (Version 2)
Quarter: 2014Q1

REPORT INFORMATION
  Report Type: Spontaneous
  Country: IT (occurrence: IT)
  Receive Date: 20131126
  Receipt Date: 20140123
  Transmission Date: 20141002
  Serious: Yes (Hospitalization)
  Sender: FDA-Public Use
  Company Number: IT-MYLANLABS-2013S1026168

PATIENT
  Age: 77 Year
  Sex: Male

DRUGS (4)
  1. QUETIAPINE [Suspect]
     Indication: COGNITIVE DISORDER
     Route: 048
     Dates: start: 20130730, end: 20130911
  2. QUETIAPINE [Suspect]
     Indication: COGNITIVE DISORDER
     Route: 048
     Dates: start: 20130912, end: 20131104
  3. QUETIAPINE [Suspect]
     Indication: COGNITIVE DISORDER
     Route: 048
     Dates: start: 20131105, end: 20131106
  4. QUETIAPINE [Suspect]
     Indication: COGNITIVE DISORDER
     Route: 048
     Dates: start: 20131107, end: 20131108

REACTIONS (1)
  - Pancytopenia [Recovering/Resolving]
